FAERS Safety Report 5638823-3 (Version None)
Quarter: 2008Q1

REPORT INFORMATION
  Report Type: 
  Country: None (occurrence: None)
  Receive Date: 20080226
  Receipt Date: 20080219
  Transmission Date: 20080703
  Serious: Yes (Other)
  Sender: FDA-Public Use
  Company Number: PHHY2008JP01627

PATIENT
  Age: 40 Year
  Sex: Male

DRUGS (6)
  1. TRYPTANOL [Concomitant]
  2. SERENACE [Concomitant]
  3. BIPERIDEN HYDROCHLORIDE TAB [Concomitant]
  4. MYSLEE [Concomitant]
  5. TOFRANIL [Suspect]
     Indication: DEPRESSION
     Dosage: 25 MG/TID
     Route: 048
  6. TOFRANIL [Suspect]
     Dosage: 105 MG/DAY

REACTIONS (4)
  - DEPRESSION [None]
  - EYE LASER SURGERY [None]
  - INSOMNIA [None]
  - VISUAL ACUITY REDUCED [None]
